FAERS Safety Report 5962645-7 (Version None)
Quarter: 2008Q4

REPORT INFORMATION
  Report Type: 
  Country: None (occurrence: None)
  Receive Date: 20081121
  Receipt Date: 20081118
  Transmission Date: 20090506
  Serious: Yes (Life-Threatening, Hospitalization)
  Sender: FDA-Public Use
  Company Number: PHHO2005DE16194

PATIENT
  Sex: Male

DRUGS (8)
  1. TASIGNA [Suspect]
     Indication: CHRONIC MYELOID LEUKAEMIA
     Dosage: 400 MG, BID
     Route: 048
     Dates: start: 20040629
  2. PRAVASTATIN [Concomitant]
     Indication: HYPERCHOLESTEROLAEMIA
  3. NEBIVOLOL [Concomitant]
     Indication: ACUTE CORONARY SYNDROME
  4. LOPIRIN [Concomitant]
     Indication: HYPERTENSION
     Dates: end: 20041129
  5. LORZAAR [Concomitant]
     Indication: HYPERTENSION
     Dates: end: 20051010
  6. UNAT [Concomitant]
     Indication: HYPERTENSION
  7. ACETYLSALICYLIC ACID SRT [Concomitant]
     Indication: VENTRICULAR EXTRASYSTOLES
     Dates: end: 20050912
  8. OMACOR [Concomitant]
     Indication: PROPHYLAXIS

REACTIONS (17)
  - ANGINA PECTORIS [None]
  - ANGIOPLASTY [None]
  - AORTIC ARTERIOSCLEROSIS [None]
  - ARTERIOSCLEROSIS [None]
  - ARTERIOSCLEROSIS CORONARY ARTERY [None]
  - CARDIOVERSION [None]
  - CHEST PAIN [None]
  - CORONARY ANGIOPLASTY [None]
  - CORONARY ARTERY BYPASS [None]
  - CORONARY ARTERY DISEASE [None]
  - CORONARY ARTERY STENOSIS [None]
  - FEMORAL ARTERIAL STENOSIS [None]
  - GAIT DISTURBANCE [None]
  - ILIAC ARTERY STENOSIS [None]
  - PERIPHERAL ARTERIAL OCCLUSIVE DISEASE [None]
  - STENT PLACEMENT [None]
  - VENTRICULAR FIBRILLATION [None]
